FAERS Safety Report 8241117-3 (Version None)
Quarter: 2012Q1

REPORT INFORMATION
  Report Type: 
  Country: None (occurrence: None)
  Receive Date: 20120328
  Receipt Date: 20120322
  Transmission Date: 20120608
  Serious: Yes (Death)
  Sender: FDA-Public Use
  Company Number: JP-GLAXOSMITHKLINE-B0791369A

PATIENT
  Sex: Female
  Weight: 59 kg

DRUGS (17)
  1. FUROSEMIDE [Concomitant]
     Dosage: 1IUAX PER DAY
     Route: 048
     Dates: start: 20111002, end: 20111007
  2. PRAVASTATIN SODIUM [Concomitant]
     Route: 048
  3. CALFINA [Concomitant]
     Route: 048
  4. GLAKAY [Concomitant]
     Route: 048
  5. COTRIM [Concomitant]
     Dosage: 1IUAX PER DAY
     Route: 048
     Dates: start: 20110608, end: 20111005
  6. RHYTHMY [Concomitant]
     Route: 048
  7. ZADITEN [Concomitant]
     Route: 031
  8. PREDNISOLONE [Concomitant]
     Dosage: 3IUAX PER DAY
     Route: 048
     Dates: start: 20110413, end: 20111005
  9. BASEN [Concomitant]
     Route: 048
  10. AMARYL [Concomitant]
     Route: 048
  11. TANATRIL [Concomitant]
     Dosage: 1IUAX PER DAY
     Route: 048
     Dates: start: 20111002, end: 20111007
  12. RABEPRAZOLE SODIUM [Concomitant]
     Route: 048
  13. MUCOSTA [Concomitant]
     Route: 048
  14. ALLEGRA [Concomitant]
     Route: 048
  15. PROMACTA [Suspect]
     Indication: IDIOPATHIC THROMBOCYTOPENIC PURPURA
     Dosage: 12.5MG PER DAY
     Route: 048
     Dates: start: 20110817, end: 20111007
  16. MAGNESIUM OXIDE [Concomitant]
     Route: 048
  17. ALDACTONE [Concomitant]
     Dosage: 1IUAX PER DAY
     Route: 048
     Dates: start: 20111002, end: 20111007

REACTIONS (1)
  - CEREBRAL INFARCTION [None]
